FAERS Safety Report 6849728-4 (Version None)
Quarter: 2010Q3

REPORT INFORMATION
  Report Type: 
  Country: None (occurrence: None)
  Receive Date: 20100716
  Receipt Date: 20071003
  Transmission Date: 20110219
  Serious: No
  Sender: FDA-Public Use
  Company Number: US-PFIZER INC-2007084339

PATIENT
  Sex: Male
  Weight: 80.7 kg

DRUGS (8)
  1. CHANTIX [Suspect]
     Indication: SMOKING CESSATION THERAPY
     Dates: start: 20070930
  2. MS CONTIN [Concomitant]
  3. ZANAFLEX [Concomitant]
  4. CELEBREX [Concomitant]
  5. KLONOPIN [Concomitant]
  6. CYMBALTA [Concomitant]
  7. NEURONTIN [Concomitant]
  8. ALL OTHER THERAPEUTIC PRODUCTS [Concomitant]
     Indication: DIABETES MELLITUS

REACTIONS (3)
  - DIARRHOEA [None]
  - INSOMNIA [None]
  - MUSCLE SPASMS [None]
